FAERS Safety Report 5007368-6 (Version None)
Quarter: 2006Q2

REPORT INFORMATION
  Report Type: 
  Country: None (occurrence: None)
  Receive Date: 20060517
  Receipt Date: 20060503
  Transmission Date: 20061013
  Serious: Yes (Life-Threatening)
  Sender: FDA-Public Use
  Company Number: 14011

PATIENT
  Age: 60 Year
  Sex: Female

DRUGS (4)
  1. PACLITAXEL [Suspect]
     Indication: OVARIAN CANCER
  2. CARBOPLATIN [Suspect]
     Indication: OVARIAN CANCER
  3. DOXORUBICIN HCL [Suspect]
     Indication: OVARIAN CANCER
     Dosage: 30 MG/M2
  4. CISPLATIN [Suspect]
     Indication: OVARIAN CANCER
     Dosage: 30 MG/M2

REACTIONS (3)
  - CARDIAC ARREST [None]
  - DRUG HYPERSENSITIVITY [None]
  - NEOPLASM PROGRESSION [None]
